FAERS Safety Report 7716662-7 (Version None)
Quarter: 2011Q3

REPORT INFORMATION
  Report Type: 
  Country: None (occurrence: None)
  Receive Date: 20110829
  Receipt Date: 20110117
  Transmission Date: 20111222
  Serious: No
  Sender: FDA-Public Use
  Company Number: US-ASTRAZENECA-2008UW28792

PATIENT
  Age: 70 Year
  Sex: Female
  Weight: 85.3 kg

DRUGS (20)
  1. ALPRAZOLAM [Concomitant]
  2. GLYBURIDE [Concomitant]
     Indication: DIABETES MELLITUS
  3. PRAVASTATIN SODIUM [Concomitant]
     Indication: HYPERCHOLESTEROLAEMIA
  4. IRESSA [Suspect]
     Indication: LUNG NEOPLASM MALIGNANT
     Route: 048
     Dates: start: 20040101
  5. ACTOS [Concomitant]
     Indication: DIABETES MELLITUS
  6. LORATADINE [Concomitant]
  7. CALCIUM CARBONATE [Concomitant]
     Indication: MINERAL SUPPLEMENTATION
  8. BYETTA [Concomitant]
     Indication: DIABETES MELLITUS
  9. FLUTICASONE PROPIONATE [Concomitant]
  10. TRIAZOLAM [Concomitant]
  11. LANSOPRAZOLE [Concomitant]
  12. MELATONIN [Concomitant]
     Indication: INSOMNIA
  13. COMBIVENT [Concomitant]
     Indication: LUNG NEOPLASM MALIGNANT
  14. IBUPROFEN [Concomitant]
  15. METOPROLOL TARTRATE [Concomitant]
     Indication: HYPERTENSION
  16. VERAMYST [Concomitant]
  17. AGGRENOX [Concomitant]
  18. ALLEGRA D 24 HOUR [Concomitant]
     Indication: HYPERSENSITIVITY
  19. METFORMIN HYDROCHLORIDE [Concomitant]
     Indication: DIABETES MELLITUS
  20. SINGULAIR [Concomitant]

REACTIONS (4)
  - WEIGHT DECREASED [None]
  - BODY HEIGHT DECREASED [None]
  - SKIN HYPERPIGMENTATION [None]
  - RASH [None]
